FAERS Safety Report 5985023-3 (Version None)
Quarter: 2008Q4

REPORT INFORMATION
  Report Type: 
  Country: None (occurrence: None)
  Receive Date: 20081208
  Receipt Date: 20080703
  Transmission Date: 20090506
  Serious: Yes (Other)
  Sender: FDA-Public Use
  Company Number: US-AMGEN-QUU288672

PATIENT
  Sex: Female
  Weight: 89.2 kg

DRUGS (7)
  1. ENBREL [Suspect]
     Indication: RHEUMATOID ARTHRITIS
     Route: 058
     Dates: start: 20071215
  2. TRAMADOL HCL [Concomitant]
  3. CELEXA [Concomitant]
  4. PREVACID [Concomitant]
  5. VITAMIN D [Concomitant]
  6. XOPENEX [Concomitant]
  7. CALCIUM [Concomitant]

REACTIONS (7)
  - ARTHRITIS [None]
  - CHILLS [None]
  - DEPRESSION [None]
  - JOINT RANGE OF MOTION DECREASED [None]
  - MALAISE [None]
  - OEDEMA PERIPHERAL [None]
  - PAIN IN EXTREMITY [None]
